FAERS Safety Report 6235952-0 (Version None)
Quarter: 2009Q2

REPORT INFORMATION
  Report Type: 
  Country: None (occurrence: None)
  Receive Date: 20090617
  Receipt Date: 20090617
  Transmission Date: 20091009
  Serious: Yes (Disabling)
  Sender: FDA-Public Use
  Company Number: None

PATIENT
  Sex: Female
  Weight: 54.4316 kg

DRUGS (2)
  1. ZICAM NOSE INHALER [Suspect]
     Indication: INFLUENZA
     Dosage: 1 SPRAY IN EACH NOSTRIL 2 X PER DAY UNK
     Route: 055
     Dates: start: 19890301, end: 19890315
  2. ZICAM NOSE INHALER [Suspect]
     Indication: NASOPHARYNGITIS
     Dosage: 1 SPRAY IN EACH NOSTRIL 2 X PER DAY UNK
     Route: 055
     Dates: start: 19890301, end: 19890315

REACTIONS (3)
  - HYPOSMIA [None]
  - NASAL DISCOMFORT [None]
  - NASAL DRYNESS [None]
